FAERS Safety Report 11290165 (Version 1)
Quarter: 2015Q3

REPORT INFORMATION
  Report Type: Spontaneous
  Country: US (occurrence: US)
  Receive Date: 20150721
  Receipt Date: 20150721
  Transmission Date: 20151125
  Serious: Yes (Other)
  Sender: FDA-Public Use
  Company Number: US-009507513-1507USA007226

PATIENT
  Age: 44 Year
  Sex: Female

DRUGS (1)
  1. DULERA [Suspect]
     Active Substance: FORMOTEROL FUMARATE DIHYDRATE\MOMETASONE FUROATE
     Indication: ASTHMA
     Dosage: UNK, BID
     Route: 048
     Dates: start: 201401

REACTIONS (8)
  - Ocular discomfort [Unknown]
  - Incorrect route of drug administration [Unknown]
  - Alopecia [Unknown]
  - Aphonia [Unknown]
  - Adrenal disorder [Unknown]
  - Menstruation irregular [Unknown]
  - Sinusitis [Unknown]
  - Inflammation [Unknown]

NARRATIVE: CASE EVENT DATE: 201401
